FAERS Safety Report 16272621 (Version 4)
Quarter: 2021Q1

REPORT INFORMATION
  Report Type: Report from Study
  Country: ES (occurrence: ES)
  Receive Date: 20190506
  Receipt Date: 20210304
  Transmission Date: 20210419
  Serious: Yes (Life-Threatening)
  Sender: FDA-Public Use
  Company Number: ES-ROCHE-2307974

PATIENT
  Age: 65 Year
  Sex: Female
  Weight: 55 kg

DRUGS (102)
  1. LEVOTHYROXINE. [Concomitant]
     Active Substance: LEVOTHYROXINE
     Indication: HYPOTHYROIDISM
     Dates: start: 2017
  2. PARACETAMOL [Concomitant]
     Active Substance: ACETAMINOPHEN
     Dates: start: 20191203, end: 20191203
  3. PARACETAMOL [Concomitant]
     Active Substance: ACETAMINOPHEN
     Dates: start: 20200225, end: 20200225
  4. PARACETAMOL [Concomitant]
     Active Substance: ACETAMINOPHEN
     Dates: start: 20190308, end: 20190313
  5. DEXCHLORPHENIRAMINE [Concomitant]
     Active Substance: DEXCHLORPHENIRAMINE
     Dates: start: 20190820, end: 20190820
  6. RANITIDINE. [Concomitant]
     Active Substance: RANITIDINE
     Dates: start: 20190618, end: 20190618
  7. RANITIDINE. [Concomitant]
     Active Substance: RANITIDINE
     Dates: start: 20191003, end: 20191003
  8. RANITIDINE. [Concomitant]
     Active Substance: RANITIDINE
     Dates: start: 20191022, end: 20191022
  9. ONDANSETRON [Concomitant]
     Active Substance: ONDANSETRON
     Dates: start: 20190730, end: 20190730
  10. ONDANSETRON [Concomitant]
     Active Substance: ONDANSETRON
     Dates: start: 20191003, end: 20191003
  11. ONDANSETRON [Concomitant]
     Active Substance: ONDANSETRON
     Dates: start: 20191112, end: 20191112
  12. ONDANSETRON [Concomitant]
     Active Substance: ONDANSETRON
     Dates: start: 20200225, end: 20200225
  13. ONDANSETRON [Concomitant]
     Active Substance: ONDANSETRON
     Dates: start: 20200317, end: 20200317
  14. DEXKETOPROFEN [Concomitant]
     Active Substance: DEXKETOPROFEN
     Dates: start: 20200225, end: 20200225
  15. OMEPRAZOLE. [Concomitant]
     Active Substance: OMEPRAZOLE
     Indication: GASTROINTESTINAL DISORDER PROPHYLAXIS
     Dates: start: 20190417
  16. NOLOTIL [Concomitant]
     Indication: HEADACHE
     Dates: start: 20190311, end: 20190313
  17. PRAVAFENIX [Concomitant]
     Active Substance: FENOFIBRATE\PRAVASTATIN
     Indication: HYPERCHOLESTEROLAEMIA
     Dates: start: 2015
  18. PRAVAFENIX [Concomitant]
     Active Substance: FENOFIBRATE\PRAVASTATIN
     Indication: HYPERTRIGLYCERIDAEMIA
  19. PARACETAMOL [Concomitant]
     Active Substance: ACETAMINOPHEN
     Indication: PYREXIA
     Dates: start: 20190618, end: 20190618
  20. PARACETAMOL [Concomitant]
     Active Substance: ACETAMINOPHEN
     Dates: start: 20200114, end: 20200114
  21. DEXCHLORPHENIRAMINE [Concomitant]
     Active Substance: DEXCHLORPHENIRAMINE
     Dates: start: 20190326, end: 20190326
  22. DEXCHLORPHENIRAMINE [Concomitant]
     Active Substance: DEXCHLORPHENIRAMINE
     Dates: start: 20200317, end: 20200317
  23. RANITIDINE. [Concomitant]
     Active Substance: RANITIDINE
     Dates: start: 20190709, end: 20190709
  24. RANITIDINE. [Concomitant]
     Active Substance: RANITIDINE
     Dates: start: 20191223, end: 20191223
  25. ONDANSETRON [Concomitant]
     Active Substance: ONDANSETRON
     Dates: start: 20190416, end: 20190416
  26. METOCLOPRAMIDE. [Concomitant]
     Active Substance: METOCLOPRAMIDE
     Dates: start: 20190308
  27. POTASSIUM [Concomitant]
     Active Substance: POTASSIUM
     Indication: PROPHYLAXIS
     Dates: start: 20200323, end: 20200325
  28. RO6874281 (FAP IL2V MAB) [Suspect]
     Active Substance: SIMLUKAFUSP ALFA
     Indication: NEOPLASM
     Dosage: STRENGTH: 50 MG/2ML?TOTAL VOLUME PRIOR TO SAE: 8.7 ML.?DATE OF MOST RECENT DOSE OF RO6874281 PRIOR T
     Route: 042
     Dates: start: 20190306
  29. CEMIDON [Concomitant]
     Active Substance: ISONIAZID
     Indication: TUBERCULOSIS
     Dates: start: 20190219
  30. PARACETAMOL [Concomitant]
     Active Substance: ACETAMINOPHEN
     Dates: start: 20190709, end: 20190709
  31. PARACETAMOL [Concomitant]
     Active Substance: ACETAMINOPHEN
     Dates: start: 20190730, end: 20190730
  32. PARACETAMOL [Concomitant]
     Active Substance: ACETAMINOPHEN
     Dates: start: 20200204, end: 20200204
  33. DEXCHLORPHENIRAMINE [Concomitant]
     Active Substance: DEXCHLORPHENIRAMINE
     Dates: start: 20190730, end: 20190730
  34. DEXCHLORPHENIRAMINE [Concomitant]
     Active Substance: DEXCHLORPHENIRAMINE
     Dates: start: 20200204, end: 20200204
  35. RANITIDINE. [Concomitant]
     Active Substance: RANITIDINE
     Dates: start: 20190730, end: 20190730
  36. RANITIDINE. [Concomitant]
     Active Substance: RANITIDINE
     Dates: start: 20200204, end: 20200204
  37. ONDANSETRON [Concomitant]
     Active Substance: ONDANSETRON
     Dates: start: 20190618, end: 20190618
  38. ONDANSETRON [Concomitant]
     Active Substance: ONDANSETRON
     Dates: start: 20190709, end: 20190709
  39. METAMIZOLE [Concomitant]
     Active Substance: METAMIZOLE
     Indication: PYREXIA
     Dates: start: 20190327, end: 20190328
  40. ATEZOLIZUMAB. [Suspect]
     Active Substance: ATEZOLIZUMAB
     Indication: NEOPLASM
     Dosage: STRENGTH: 1200 MG/20ML?DATE OF MOST RECENT DOSE OF ATEZOLIZUMAB PRIOR TO AE ONSET 16?APR?19 AT 12:54
     Route: 041
     Dates: start: 20190306
  41. UMECLIDINIUM BROMIDE [Concomitant]
     Active Substance: UMECLIDINIUM BROMIDE
     Indication: CHRONIC OBSTRUCTIVE PULMONARY DISEASE
     Dates: start: 2016
  42. PARACETAMOL [Concomitant]
     Active Substance: ACETAMINOPHEN
     Indication: PAIN
     Dates: start: 2018
  43. PARACETAMOL [Concomitant]
     Active Substance: ACETAMINOPHEN
     Indication: PREMEDICATION
     Route: 042
     Dates: start: 20190416, end: 20190416
  44. PARACETAMOL [Concomitant]
     Active Substance: ACETAMINOPHEN
     Route: 042
     Dates: start: 20200317, end: 20200317
  45. PARACETAMOL [Concomitant]
     Active Substance: ACETAMINOPHEN
     Dates: start: 20190311, end: 20190311
  46. DEXCHLORPHENIRAMINE [Concomitant]
     Active Substance: DEXCHLORPHENIRAMINE
     Dates: start: 20190416, end: 20190416
  47. DEXCHLORPHENIRAMINE [Concomitant]
     Active Substance: DEXCHLORPHENIRAMINE
     Dates: start: 20200225, end: 20200225
  48. RANITIDINE. [Concomitant]
     Active Substance: RANITIDINE
     Indication: PREMEDICATION
     Dates: start: 20190306, end: 20190306
  49. RANITIDINE. [Concomitant]
     Active Substance: RANITIDINE
     Dates: start: 20190416, end: 20190416
  50. RANITIDINE. [Concomitant]
     Active Substance: RANITIDINE
     Dates: start: 20190528, end: 20190528
  51. RANITIDINE. [Concomitant]
     Active Substance: RANITIDINE
     Dates: start: 20191112, end: 20191112
  52. RANITIDINE. [Concomitant]
     Active Substance: RANITIDINE
     Dates: start: 20200114, end: 20200114
  53. RANITIDINE. [Concomitant]
     Active Substance: RANITIDINE
     Dates: start: 20200317, end: 20200317
  54. ONDANSETRON [Concomitant]
     Active Substance: ONDANSETRON
     Indication: PREMEDICATION
     Dates: start: 20190306, end: 20190306
  55. ONDANSETRON [Concomitant]
     Active Substance: ONDANSETRON
     Dates: start: 20190910, end: 20190910
  56. ONDANSETRON [Concomitant]
     Active Substance: ONDANSETRON
     Dates: start: 20191203, end: 20191203
  57. ONDANSETRON [Concomitant]
     Active Substance: ONDANSETRON
     Dates: start: 20190326, end: 20190326
  58. METOCLOPRAMIDE. [Concomitant]
     Active Substance: METOCLOPRAMIDE
     Indication: PREMEDICATION
     Dates: start: 20190618, end: 20190618
  59. METOCLOPRAMIDE. [Concomitant]
     Active Substance: METOCLOPRAMIDE
     Indication: NAUSEA
     Dates: start: 20190910, end: 20190910
  60. PARACETAMOL [Concomitant]
     Active Substance: ACETAMINOPHEN
     Indication: NEOPLASM
     Route: 042
     Dates: start: 20190306, end: 20190306
  61. DEXCHLORPHENIRAMINE [Concomitant]
     Active Substance: DEXCHLORPHENIRAMINE
     Dates: start: 20190528, end: 20190528
  62. DEXCHLORPHENIRAMINE [Concomitant]
     Active Substance: DEXCHLORPHENIRAMINE
     Dates: start: 20190709, end: 20190709
  63. DEXCHLORPHENIRAMINE [Concomitant]
     Active Substance: DEXCHLORPHENIRAMINE
     Dates: start: 20191112, end: 20191112
  64. RANITIDINE. [Concomitant]
     Active Substance: RANITIDINE
     Dates: start: 20190820, end: 20190820
  65. DEXKETOPROFEN [Concomitant]
     Active Substance: DEXKETOPROFEN
     Dates: start: 20190326, end: 20190326
  66. FOSTER [Concomitant]
     Active Substance: BECLOMETHASONE\FORMOTEROL
     Indication: CHRONIC OBSTRUCTIVE PULMONARY DISEASE
     Dates: start: 2016
  67. DEXCHLORPHENIRAMINE [Concomitant]
     Active Substance: DEXCHLORPHENIRAMINE
     Dates: start: 20190507, end: 20190507
  68. DEXCHLORPHENIRAMINE [Concomitant]
     Active Substance: DEXCHLORPHENIRAMINE
     Dates: start: 20191203, end: 20191203
  69. RANITIDINE. [Concomitant]
     Active Substance: RANITIDINE
     Dates: start: 20190507, end: 20190507
  70. RANITIDINE. [Concomitant]
     Active Substance: RANITIDINE
     Dates: start: 20190910, end: 20190910
  71. RANITIDINE. [Concomitant]
     Active Substance: RANITIDINE
     Dates: start: 20191203, end: 20191203
  72. ONDANSETRON [Concomitant]
     Active Substance: ONDANSETRON
     Dates: start: 20190507, end: 20190507
  73. ONDANSETRON [Concomitant]
     Active Substance: ONDANSETRON
     Dates: start: 20191022, end: 20191022
  74. ONDANSETRON [Concomitant]
     Active Substance: ONDANSETRON
     Dates: start: 20191223, end: 20191223
  75. ONDANSETRON [Concomitant]
     Active Substance: ONDANSETRON
     Dates: start: 20200204, end: 20200204
  76. ENANTYUM [Concomitant]
     Active Substance: DEXKETOPROFEN TROMETAMOL
     Dates: start: 20190910, end: 20190910
  77. INDOMETACIN [Concomitant]
     Active Substance: INDOMETHACIN
     Indication: PYREXIA
     Dates: start: 20190307, end: 20190308
  78. LORATADINE. [Concomitant]
     Active Substance: LORATADINE
     Indication: PRURITUS
     Dates: start: 20190311, end: 20190326
  79. PARACETAMOL [Concomitant]
     Active Substance: ACETAMINOPHEN
     Indication: MYALGIA
     Dates: start: 20190528, end: 20190528
  80. PARACETAMOL [Concomitant]
     Active Substance: ACETAMINOPHEN
     Dates: start: 20191003, end: 20191003
  81. PARACETAMOL [Concomitant]
     Active Substance: ACETAMINOPHEN
     Dates: start: 20190327, end: 20190328
  82. DEXCHLORPHENIRAMINE [Concomitant]
     Active Substance: DEXCHLORPHENIRAMINE
     Dates: start: 20191003, end: 20191003
  83. DEXCHLORPHENIRAMINE [Concomitant]
     Active Substance: DEXCHLORPHENIRAMINE
     Dates: start: 20191223, end: 20191223
  84. RANITIDINE. [Concomitant]
     Active Substance: RANITIDINE
     Dates: start: 20190326, end: 20190326
  85. ONDANSETRON [Concomitant]
     Active Substance: ONDANSETRON
     Dates: start: 20190528, end: 20190528
  86. ONDANSETRON [Concomitant]
     Active Substance: ONDANSETRON
     Dates: start: 20190820, end: 20190820
  87. ONDANSETRON [Concomitant]
     Active Substance: ONDANSETRON
     Dates: start: 20200114, end: 20200114
  88. PARACETAMOL [Concomitant]
     Active Substance: ACETAMINOPHEN
     Indication: HEADACHE
     Route: 042
     Dates: start: 20190507, end: 20190507
  89. PARACETAMOL [Concomitant]
     Active Substance: ACETAMINOPHEN
     Dates: start: 20190820, end: 20190820
  90. PARACETAMOL [Concomitant]
     Active Substance: ACETAMINOPHEN
     Dates: start: 20190910, end: 20190910
  91. PARACETAMOL [Concomitant]
     Active Substance: ACETAMINOPHEN
     Dates: start: 20191022, end: 20191022
  92. PARACETAMOL [Concomitant]
     Active Substance: ACETAMINOPHEN
     Dates: start: 20191112, end: 20191112
  93. PARACETAMOL [Concomitant]
     Active Substance: ACETAMINOPHEN
     Dates: start: 20191223, end: 20191223
  94. DEXCHLORPHENIRAMINE [Concomitant]
     Active Substance: DEXCHLORPHENIRAMINE
     Indication: PREMEDICATION
     Dates: start: 20190306, end: 20190306
  95. DEXCHLORPHENIRAMINE [Concomitant]
     Active Substance: DEXCHLORPHENIRAMINE
     Dates: start: 20190910, end: 20190910
  96. DEXCHLORPHENIRAMINE [Concomitant]
     Active Substance: DEXCHLORPHENIRAMINE
     Dates: start: 20191022, end: 20191022
  97. DEXCHLORPHENIRAMINE [Concomitant]
     Active Substance: DEXCHLORPHENIRAMINE
     Dates: start: 20200114, end: 20200114
  98. RANITIDINE. [Concomitant]
     Active Substance: RANITIDINE
     Dates: start: 20200225, end: 20200225
  99. OMEPRAZOLE. [Concomitant]
     Active Substance: OMEPRAZOLE
     Dates: start: 20190910, end: 20190910
  100. PRIMPERAN [Concomitant]
     Active Substance: METOCLOPRAMIDE HYDROCHLORIDE
     Indication: PREMEDICATION
     Dates: start: 20200225, end: 20200225
  101. PHOSPHORUS [Concomitant]
     Active Substance: PHOSPHORUS
     Indication: PREMEDICATION
     Dates: start: 20200323, end: 20200325
  102. NOLOTIL [Concomitant]
     Indication: MYALGIA
     Dates: start: 20190311, end: 20190311

REACTIONS (1)
  - Lymphopenia [Recovered/Resolved]

NARRATIVE: CASE EVENT DATE: 20190327
